FAERS Safety Report 9451586 (Version 1)
Quarter: 2013Q3

REPORT INFORMATION
  Report Type: Spontaneous
  Country: US (occurrence: US)
  Receive Date: 20130811
  Receipt Date: 20130811
  Transmission Date: 20140515
  Serious: Yes (Death, Hospitalization)
  Sender: FDA-Public Use
  Company Number: US-CUBIST PHARMACEUTICAL, INC.-2013CBST000255

PATIENT
  Age: 76 Year
  Sex: Male
  Weight: 74 kg

DRUGS (25)
  1. CUBICIN [Suspect]
     Indication: STAPHYLOCOCCAL BACTERAEMIA
     Dosage: 475 MG, Q48H AFTER DIALYSIS
     Route: 065
     Dates: start: 20130112, end: 20130114
  2. CUBICIN [Suspect]
     Dosage: 6MG/KG, Q48H AFTER DIALYSIS
     Route: 065
     Dates: start: 20130112, end: 20130114
  3. CUBICIN [Suspect]
     Dosage: 475 MG, Q48H AFTER DIALYSIS
     Route: 065
     Dates: start: 20130114, end: 20130124
  4. CUBICIN [Suspect]
     Dosage: 10MG/KG, Q48H AFTER DIALYSIS
     Route: 065
     Dates: start: 20130114, end: 20130124
  5. CUBICIN [Suspect]
     Dosage: 700 MG, X1
     Route: 065
     Dates: start: 20130125, end: 20130125
  6. CUBICIN [Suspect]
     Dosage: 10 MG/KG, X1
     Route: 065
     Dates: start: 20130125, end: 20130125
  7. CUBICIN [Suspect]
     Dosage: 475 MG, Q48H
     Route: 065
     Dates: start: 20130128, end: 20130218
  8. CUBICIN [Suspect]
     Dosage: 6 MG/KG, Q48H
     Route: 065
     Dates: start: 20130128, end: 20130218
  9. CUBICIN [Suspect]
     Dosage: 450 MG, Q48H
     Route: 065
     Dates: start: 20130218, end: 20130220
  10. CUBICIN [Suspect]
     Dosage: 675 MG, Q48H
     Route: 065
     Dates: start: 20130222, end: 20130225
  11. RIFAMPIN [Suspect]
     Indication: STAPHYLOCOCCAL BACTERAEMIA
     Dosage: 300 MG, BID
     Route: 048
     Dates: start: 20130115
  12. ALLOPURINOL [Concomitant]
     Indication: PRODUCT USED FOR UNKNOWN INDICATION
     Dosage: 10 MG, QD
     Route: 048
  13. CETIRIZINE [Concomitant]
     Indication: PRODUCT USED FOR UNKNOWN INDICATION
     Dosage: 10 MG, QD
     Route: 048
  14. GABAPENTIN [Concomitant]
     Indication: PRODUCT USED FOR UNKNOWN INDICATION
     Dosage: 100 MG, TID
  15. LANTUS [Concomitant]
     Indication: PRODUCT USED FOR UNKNOWN INDICATION
     Dosage: 6 IU, HS WITH DINNER
  16. MIDODRINE [Concomitant]
     Indication: PRODUCT USED FOR UNKNOWN INDICATION
     Dosage: 10 MG, PRN AFTER DIALYSIS
  17. SEVELAMER [Concomitant]
     Indication: PRODUCT USED FOR UNKNOWN INDICATION
     Dosage: 160 MG, BID
  18. VITAMIN D                          /00107901/ [Concomitant]
     Indication: PRODUCT USED FOR UNKNOWN INDICATION
     Dosage: 1000 IU, UNK
  19. ASPIRIN [Concomitant]
     Indication: PRODUCT USED FOR UNKNOWN INDICATION
     Dosage: 162 MG, QD
     Route: 048
  20. FENOFIBRATE [Concomitant]
     Indication: PRODUCT USED FOR UNKNOWN INDICATION
     Dosage: 145 MG, QD
  21. NOVOLOG [Concomitant]
     Indication: PRODUCT USED FOR UNKNOWN INDICATION
     Dosage: UNK UNK, UNK W/MEALS
  22. METOPROLOL [Concomitant]
     Indication: PRODUCT USED FOR UNKNOWN INDICATION
     Dosage: 12.5 MG, BID
  23. PANTOPRAZOLE [Concomitant]
     Indication: PRODUCT USED FOR UNKNOWN INDICATION
     Dosage: 40 MG, QD
  24. VITAMIN B12                        /00056201/ [Concomitant]
     Indication: PRODUCT USED FOR UNKNOWN INDICATION
     Dosage: 100 ??G, QD
  25. DARBEPOETIN ALFA [Concomitant]
     Indication: HAEMODIALYSIS
     Dosage: 200 ??G, UNK

REACTIONS (4)
  - Death [Fatal]
  - Staphylococcal bacteraemia [Unknown]
  - Mental status changes [Unknown]
  - Pathogen resistance [Unknown]
